FAERS Safety Report 6965297-2 (Version None)
Quarter: 2010Q3

REPORT INFORMATION
  Report Type: 
  Country: None (occurrence: None)
  Receive Date: 20100903
  Receipt Date: 20100826
  Transmission Date: 20110219
  Serious: Yes (Hospitalization)
  Sender: FDA-Public Use
  Company Number: US-MYLANLABS-2010S1015775

PATIENT
  Sex: Female

DRUGS (5)
  1. BISOPROLOL FUMARATE AND HYDROCHLOROTHIAZIDE TABLETS [Suspect]
     Indication: BLOOD PRESSURE INCREASED
     Route: 048
     Dates: start: 20030101, end: 20100801
  2. BISOPROLOL FUMARATE AND HYDROCHLOROTHIAZIDE TABLETS [Suspect]
     Route: 048
     Dates: start: 20030101, end: 20100801
  3. BISOPROLOL FUMARATE [Suspect]
     Indication: BLOOD PRESSURE INCREASED
     Route: 048
     Dates: start: 20100801
  4. ESTROGEN [Concomitant]
  5. SIMCOR /03020801/ [Concomitant]
     Indication: BLOOD CHOLESTEROL INCREASED

REACTIONS (2)
  - DEHYDRATION [None]
  - VOMITING [None]
